APPROVED DRUG PRODUCT: LIALDA
Active Ingredient: MESALAMINE
Strength: 1.2GM
Dosage Form/Route: TABLET, DELAYED RELEASE;ORAL
Application: N022000 | Product #001 | TE Code: AB
Applicant: TAKEDA PHARMACEUTICALS USA INC
Approved: Jan 16, 2007 | RLD: Yes | RS: Yes | Type: RX